FAERS Safety Report 4823462-4 (Version None)
Quarter: 2005Q4

REPORT INFORMATION
  Report Type: 
  Country: None (occurrence: None)
  Receive Date: 20051107
  Receipt Date: 20051025
  Transmission Date: 20060501
  Serious: Yes (Hospitalization)
  Sender: FDA-Public Use
  Company Number: HQWYE262126OCT05

PATIENT
  Age: 51 Year
  Sex: Female

DRUGS (2)
  1. PREMARIN [Suspect]
     Indication: HORMONE REPLACEMENT THERAPY
     Dosage: ORAL
     Route: 048
     Dates: start: 20051008, end: 20051013
  2. PROVERA [Suspect]
     Dates: start: 20051008, end: 20051013

REACTIONS (1)
  - HEPATITIS FULMINANT [None]
